FAERS Safety Report 5251623-1 (Version None)
Quarter: 2007Q1

REPORT INFORMATION
  Report Type: 
  Country: None (occurrence: None)
  Receive Date: 20070228
  Receipt Date: 20060927
  Transmission Date: 20070707
  Serious: No
  Sender: FDA-Public Use
  Company Number: US-GLAXOSMITHKLINE-A0621681A

PATIENT
  Age: 4 Year
  Sex: Male

DRUGS (3)
  1. LAMICTAL [Suspect]
     Indication: BIPOLAR DISORDER
     Dosage: 25MG TWICE PER DAY
     Route: 048
     Dates: start: 20060907, end: 20060926
  2. SEROQUEL [Concomitant]
  3. CONCERTA [Concomitant]

REACTIONS (4)
  - BLISTER [None]
  - MALAISE [None]
  - PYREXIA [None]
  - RASH [None]
